FAERS Safety Report 7724257-4 (Version None)
Quarter: 2011Q3

REPORT INFORMATION
  Report Type: 
  Country: None (occurrence: None)
  Receive Date: 20110901
  Receipt Date: 20110823
  Transmission Date: 20111222
  Serious: Yes (Hospitalization)
  Sender: FDA-Public Use
  Company Number: IT-ASTRAZENECA-2011SE50467

PATIENT
  Age: 25252 Day
  Sex: Male

DRUGS (11)
  1. PEPTAZOL [Concomitant]
     Indication: GASTRITIS PROPHYLAXIS
     Route: 048
  2. TRAMADOL HCL [Concomitant]
     Indication: NECK PAIN
     Route: 048
  3. TIOBEC [Concomitant]
     Indication: NECK PAIN
     Route: 048
  4. NIMEDEX [Concomitant]
     Indication: NECK PAIN
     Route: 048
  5. LEXOTAN [Concomitant]
     Indication: ANXIETY
     Dosage: 20 DROPS DAILY
     Route: 048
  6. ADALAT [Concomitant]
     Indication: HYPERTENSION
     Route: 048
     Dates: start: 20110624, end: 20110704
  7. ADALAT [Concomitant]
     Route: 048
     Dates: start: 20110705
  8. VANDETANIB [Suspect]
     Indication: THYROID CANCER
     Route: 048
     Dates: start: 20110601, end: 20110619
  9. VANDETANIB [Suspect]
     Route: 048
     Dates: start: 20110816, end: 20110822
  10. VANDETANIB [Suspect]
     Route: 048
     Dates: start: 20110628, end: 20110807
  11. LEVOTHYROXINE SODIUM [Concomitant]
     Indication: HYPOTHYROIDISM
     Route: 048

REACTIONS (1)
  - ABDOMINAL PAIN UPPER [None]
